FAERS Safety Report 7424122-6 (Version None)
Quarter: 2011Q2

REPORT INFORMATION
  Report Type: 
  Country: None (occurrence: None)
  Receive Date: 20110419
  Receipt Date: 20110407
  Transmission Date: 20111010
  Serious: Yes (Other)
  Sender: FDA-Public Use
  Company Number: US-CEPHALON-US022767

PATIENT
  Sex: Female
  Weight: 54 kg

DRUGS (3)
  1. PROVIGIL [Suspect]
     Indication: NARCOLEPSY
     Route: 048
     Dates: start: 20050901, end: 20060201
  2. XYREM [Suspect]
     Dosage: TWICE A DAY IN EVENING HOURS
     Route: 065
     Dates: start: 20070719
  3. XYREM [Suspect]
     Dosage: TWICE A DAY IN EVENING HOURS
     Route: 065

REACTIONS (2)
  - PLACENTA PRAEVIA [None]
  - DRUG EXPOSURE DURING PREGNANCY [None]
